FAERS Safety Report 10016755 (Version 1)
Quarter: 2014Q1

REPORT INFORMATION
  Report Type: Spontaneous
  Country: FR (occurrence: FR)
  Receive Date: 20140318
  Receipt Date: 20140318
  Transmission Date: 20141002
  Serious: Yes (Death, Hospitalization)
  Sender: FDA-Public Use
  Company Number: PHHY2014FR030032

PATIENT
  Age: 42 Year
  Sex: Female

DRUGS (1)
  1. HEPARIN [Suspect]

REACTIONS (2)
  - Death [Fatal]
  - Heparin-induced thrombocytopenia [Unknown]
